FAERS Safety Report 7871431-2 (Version None)
Quarter: 2011Q4

REPORT INFORMATION
  Report Type: 
  Country: None (occurrence: None)
  Receive Date: 20111029
  Receipt Date: 20110302
  Transmission Date: 20120403
  Serious: No
  Sender: FDA-Public Use
  Company Number: US-AMGEN-USASP2011011863

PATIENT
  Age: 71 Year
  Sex: Female

DRUGS (3)
  1. ENBREL [Suspect]
     Indication: PSORIATIC ARTHROPATHY
  2. ENBREL [Suspect]
     Indication: RHEUMATOID ARTHRITIS
     Dates: start: 20090201, end: 20101101
  3. ENBREL [Suspect]
     Indication: PSORIASIS

REACTIONS (4)
  - PSORIATIC ARTHROPATHY [None]
  - DRUG DOSE OMISSION [None]
  - PSORIASIS [None]
  - ALOPECIA [None]
